FAERS Safety Report 8028111-2 (Version None)
Quarter: 2012Q1

REPORT INFORMATION
  Report Type: 
  Country: None (occurrence: None)
  Receive Date: 20120104
  Receipt Date: 20111227
  Transmission Date: 20120608
  Serious: Yes (Other)
  Sender: FDA-Public Use
  Company Number: 1000026583

PATIENT
  Age: 64 Year
  Sex: Female

DRUGS (6)
  1. COENZYME Q10 (UBIDECARENONE) (UBIDECARENONE) [Concomitant]
  2. ALPHAGAN P (BRIMONIDINE TARTRATE) (EYE DROPS) (BRIMONIDINE TARTRATE) [Concomitant]
  3. TIMOLOL MALEATE (TIMOLOL MALEATE) (EYE DROPS) (TIMOLOL MALEATE) [Concomitant]
  4. BYSTOLIC [Suspect]
     Indication: HYPERTENSION
     Dosage: 5 MG (5 MG,1 IN 1 D),ORAL ; 10 MG (10 MG,1 IN 1 D),ORAL
     Route: 048
     Dates: start: 20111201
  5. BYSTOLIC [Suspect]
     Indication: HYPERTENSION
     Dosage: 5 MG (5 MG,1 IN 1 D),ORAL ; 10 MG (10 MG,1 IN 1 D),ORAL
     Route: 048
     Dates: start: 20111101, end: 20111201
  6. FISH OIL (FISH OIL) (FISH OIL) [Concomitant]

REACTIONS (2)
  - ARRHYTHMIA [None]
  - HEART RATE DECREASED [None]
